APPROVED DRUG PRODUCT: ATENOLOL
Active Ingredient: ATENOLOL
Strength: 50MG
Dosage Form/Route: TABLET;ORAL
Application: A078210 | Product #002
Applicant: SUN PHARMACEUTICAL INDUSTRIES INC
Approved: Jul 10, 2007 | RLD: No | RS: No | Type: DISCN